FAERS Safety Report 16994597 (Version 1)
Quarter: 2019Q4

REPORT INFORMATION
  Report Type: Spontaneous
  Country: US (occurrence: US)
  Receive Date: 20191105
  Receipt Date: 20191105
  Transmission Date: 20200122
  Serious: Yes (Other)
  Sender: FDA-Public Use
  Company Number: US-BAYER-2019-198573

PATIENT
  Age: 39 Year
  Sex: Female

DRUGS (4)
  1. METHYLPREDNISOLONE. [Concomitant]
     Active Substance: METHYLPREDNISOLONE
     Indication: ANTIPHOSPHOLIPID SYNDROME
     Route: 042
  2. ACETYLSALICYLIC ACID (CARDIO) [Suspect]
     Active Substance: ASPIRIN
     Indication: ANTIPHOSPHOLIPID SYNDROME
  3. HEPARIN [Concomitant]
     Active Substance: HEPARIN SODIUM
  4. ENOXAPARIN [Concomitant]
     Active Substance: ENOXAPARIN

REACTIONS (3)
  - Product use in unapproved indication [None]
  - Pulmonary alveolar haemorrhage [None]
  - Off label use [None]
